FAERS Safety Report 8363416-7 (Version None)
Quarter: 2012Q2

REPORT INFORMATION
  Report Type: 
  Country: None (occurrence: None)
  Receive Date: 20120516
  Receipt Date: 20120503
  Transmission Date: 20120825
  Serious: Yes (Death)
  Sender: FDA-Public Use
  Company Number: US-MYLANLABS-2008S1019492

PATIENT
  Age: 47 Year
  Sex: Female
  Weight: 72 kg

DRUGS (10)
  1. FENTANYL-100 [Suspect]
     Indication: NECK PAIN
     Dosage: CHANGE Q3D
     Route: 062
     Dates: start: 20060926, end: 20061001
  2. ACTONEL [Concomitant]
     Route: 048
  3. GABAPENTIN [Concomitant]
     Route: 048
  4. PERCOCET [Concomitant]
     Dosage: 10MG/325MG  TAKE EVERY SIX TO EIGHT HOURS AS NEEDED
  5. AMITRIPTYLINE HCL [Concomitant]
     Route: 048
  6. LUNESTA [Concomitant]
  7. ALPRAZOLAM [Concomitant]
  8. OXYCODONE AND ACETAMINOPHEN [Concomitant]
     Dosage: 10MG/325MG
  9. EFFEXOR [Concomitant]
     Route: 048
  10. AMBIEN [Concomitant]

REACTIONS (4)
  - HYPOXIC-ISCHAEMIC ENCEPHALOPATHY [None]
  - CARDIAC ARREST [None]
  - RESPIRATORY ARREST [None]
  - TOXICITY TO VARIOUS AGENTS [None]
